FAERS Safety Report 5691985-4 (Version None)
Quarter: 2008Q2

REPORT INFORMATION
  Report Type: 
  Country: None (occurrence: None)
  Receive Date: 20080402
  Receipt Date: 20080327
  Transmission Date: 20081010
  Serious: Yes (Other)
  Sender: FDA-Public Use
  Company Number: US-JNJFOC-20080306740

PATIENT
  Age: 59 Year
  Sex: Male
  Weight: 75.75 kg

DRUGS (4)
  1. SIMPLY SLEEP NIGHTTIME [Suspect]
     Indication: MIDDLE INSOMNIA
     Dosage: 1/2 - 3/4, UP TO 1 CAPLET DAILY
     Route: 048
  2. LIPITOR [Concomitant]
  3. LOPRESSOR [Concomitant]
     Indication: HYPERTENSION
  4. ENAPRIL [Concomitant]

REACTIONS (3)
  - INCORRECT DRUG ADMINISTRATION DURATION [None]
  - SLEEP APNOEA SYNDROME [None]
  - WRONG TECHNIQUE IN DRUG USAGE PROCESS [None]
